FAERS Safety Report 7688428-8 (Version None)
Quarter: 2011Q3

REPORT INFORMATION
  Report Type: 
  Country: None (occurrence: None)
  Receive Date: 20110817
  Receipt Date: 20110811
  Transmission Date: 20111222
  Serious: Yes (Other)
  Sender: FDA-Public Use
  Company Number: FR-ROCHE-794036

PATIENT
  Sex: Female
  Weight: 56 kg

DRUGS (15)
  1. TEMOZOLOMIDE [Suspect]
     Route: 048
     Dates: start: 20101208
  2. LOVENOX [Concomitant]
     Dosage: DRUG:LOVENOX 0.4 ML, TDD:1/D
  3. LORAZEPAM [Concomitant]
     Dates: start: 20101102
  4. RABEPRAZOLE SODIUM [Concomitant]
  5. DURAGESIC-100 [Concomitant]
     Dosage: DRUG: DUROGESIC 50 UG
  6. LEVOTHYROXINE SODIUM [Concomitant]
  7. CITALOPRAM HYDROBROMIDE [Concomitant]
  8. LEXOMIL [Concomitant]
     Dosage: DRUG:LEXOMIL 6 MG,TDD:1/2 TABLET
  9. LASIX [Concomitant]
  10. AMITRIPTYLINE HCL [Concomitant]
  11. TEMOZOLOMIDE [Suspect]
     Route: 048
     Dates: start: 20110605
  12. TEMOZOLOMIDE [Suspect]
     Indication: GLIOBLASTOMA
     Dosage: LAST DOSE PRIOR TO SAE:03 MAY 2011
     Route: 048
     Dates: start: 20101023, end: 20101105
  13. LYRICA [Concomitant]
     Dates: start: 20100701
  14. BEVACIZUMAB [Suspect]
     Indication: GLIOBLASTOMA
     Route: 042
     Dates: start: 20110706
  15. IRINOTECAN HCL [Suspect]
     Indication: GLIOBLASTOMA
     Route: 042
     Dates: start: 20110706

REACTIONS (3)
  - CYTOLYTIC HEPATITIS [None]
  - NEUTROPENIA [None]
  - TUMOUR HAEMORRHAGE [None]
